FAERS Safety Report 21860458 (Version 1)
Quarter: 2023Q1

REPORT INFORMATION
  Report Type: Spontaneous
  Country: GB (occurrence: GB)
  Receive Date: 20230113
  Receipt Date: 20230113
  Transmission Date: 20230417
  Serious: Yes (Other)
  Sender: FDA-Public Use
  Company Number: GB-MYLANLABS-2022M1141554

PATIENT
  Age: 48 Year
  Sex: Female

DRUGS (1)
  1. LATANOPROST [Suspect]
     Active Substance: LATANOPROST
     Indication: Ocular hypertension
     Dosage: UNK, 0.005%
     Route: 065

REACTIONS (3)
  - Ocular surface disease [Recovering/Resolving]
  - Meibomian gland dysfunction [Unknown]
  - Conjunctival hyperaemia [Recovering/Resolving]
